FAERS Safety Report 14860873 (Version 4)
Quarter: 2024Q2

REPORT INFORMATION
  Report Type: Other
  Country: GB (occurrence: GB)
  Receive Date: 20180508
  Receipt Date: 20240625
  Transmission Date: 20240716
  Serious: Yes (Death, Hospitalization, Other)
  Sender: FDA-Public Use
  Company Number: GB-MACLEODS PHARMACEUTICALS US LTD-MAC2018012985

PATIENT

DRUGS (29)
  1. LEVOFLOXACIN [Suspect]
     Active Substance: LEVOFLOXACIN
     Indication: Infection in an immunocompromised host
     Dosage: UNK
     Route: 065
  2. LEVOFLOXACIN [Suspect]
     Active Substance: LEVOFLOXACIN
     Indication: Antibiotic prophylaxis
  3. FLUCONAZOLE [Suspect]
     Active Substance: FLUCONAZOLE
     Indication: Antifungal prophylaxis
     Dosage: 200 MILLIGRAM
     Route: 065
  4. MEROPENEM [Suspect]
     Active Substance: MEROPENEM
     Indication: Infection
     Dosage: UNK
     Route: 065
  5. MEROPENEM [Suspect]
     Active Substance: MEROPENEM
     Indication: Antibiotic prophylaxis
  6. PIPERACILLIN SODIUM\TAZOBACTAM SODIUM [Suspect]
     Active Substance: PIPERACILLIN SODIUM\TAZOBACTAM SODIUM
     Indication: Infection
     Dosage: UNK
     Route: 065
  7. PIPERACILLIN SODIUM\TAZOBACTAM SODIUM [Suspect]
     Active Substance: PIPERACILLIN SODIUM\TAZOBACTAM SODIUM
     Indication: Antibiotic prophylaxis
  8. PREDNISOLONE [Suspect]
     Active Substance: PREDNISOLONE
     Indication: Graft versus host disease
     Dosage: UNK, (2 MG/KG)
     Route: 065
  9. AMPHOTERICIN B [Suspect]
     Active Substance: AMPHOTERICIN B
     Indication: Infection
     Dosage: UNK
     Route: 065
  10. AMPHOTERICIN B [Suspect]
     Active Substance: AMPHOTERICIN B
     Indication: Antibiotic prophylaxis
  11. AMSACRINE [Suspect]
     Active Substance: AMSACRINE
     Indication: Acute myeloid leukaemia
     Dosage: 100 MG/M2 UNK
     Route: 065
  12. THYMOCYTE IMMUNE GLOBULIN NOS [Suspect]
     Active Substance: THYMOCYTE IMMUNE GLOBULIN NOS
     Indication: Graft versus host disease
     Dosage: UNK, POWDER FOR SOLUTION FOR INFUSION
     Route: 065
  13. THYMOCYTE IMMUNE GLOBULIN NOS [Suspect]
     Active Substance: THYMOCYTE IMMUNE GLOBULIN NOS
     Indication: Immunosuppression
     Dosage: UNK, (5 MG/ KG) WAS ADMINISTERED FOR 4 DAYS )
     Route: 065
  14. BUSULFAN [Suspect]
     Active Substance: BUSULFAN
     Indication: Acute myeloid leukaemia
     Dosage: 3.2 MILLIGRAM/KILOGRAM
     Route: 065
  15. CASPOFUNGIN [Suspect]
     Active Substance: CASPOFUNGIN
     Indication: Antibiotic prophylaxis
     Dosage: UNK
     Route: 065
  16. CEFTAZIDIME [Suspect]
     Active Substance: CEFTAZIDIME
     Indication: Infection
     Dosage: UNK
     Route: 065
  17. CEFTAZIDIME [Suspect]
     Active Substance: CEFTAZIDIME
     Indication: Antibiotic prophylaxis
  18. CYTARABINE [Suspect]
     Active Substance: CYTARABINE
     Indication: Acute myeloid leukaemia
     Dosage: 2000 MG/M2UNK
     Route: 065
  19. FLUDARABINE PHOSPHATE [Suspect]
     Active Substance: FLUDARABINE PHOSPHATE
     Indication: Acute myeloid leukaemia
     Dosage: 30 MG/M2 UNK
     Route: 065
  20. MITOXANTRONE HYDROCHLORIDE [Suspect]
     Active Substance: MITOXANTRONE HYDROCHLORIDE
     Indication: Acute myeloid leukaemia
     Dosage: UNK
     Route: 065
  21. MITOXANTRONE HYDROCHLORIDE [Suspect]
     Active Substance: MITOXANTRONE HYDROCHLORIDE
     Indication: Chemotherapy
  22. MYCOPHENOLATE MOFETIL [Suspect]
     Active Substance: MYCOPHENOLATE MOFETIL
     Indication: Acute myeloid leukaemia
     Dosage: UNK
     Route: 065
  23. TIGECYCLINE [Suspect]
     Active Substance: TIGECYCLINE
     Indication: Infection
     Dosage: UNK
     Route: 065
  24. TIGECYCLINE [Suspect]
     Active Substance: TIGECYCLINE
     Indication: Antibiotic prophylaxis
  25. ANTI-THYMOCYTE GLOBULIN (RABBIT) NOS [Suspect]
     Active Substance: LAPINE T-LYMPHOCYTE IMMUNE GLOBULIN
     Indication: Acute myeloid leukaemia
     Dosage: 5 MG/ KG WAS ADMINISTERED FOR 4 DAYS
     Route: 065
  26. VANCOMYCIN [Suspect]
     Active Substance: VANCOMYCIN
     Indication: Infection
     Dosage: UNK
     Route: 065
  27. VANCOMYCIN [Suspect]
     Active Substance: VANCOMYCIN
     Indication: Antibiotic prophylaxis
  28. CYCLOSPORINE [Suspect]
     Active Substance: CYCLOSPORINE
     Indication: Immunosuppressant drug therapy
     Dosage: UNK
     Route: 065
  29. CYCLOSPORINE [Suspect]
     Active Substance: CYCLOSPORINE
     Indication: Acute myeloid leukaemia

REACTIONS (15)
  - Systemic inflammatory response syndrome [Fatal]
  - Paraspinal abscess [Fatal]
  - Graft versus host disease [Fatal]
  - Gastrointestinal disorder [Fatal]
  - Malaise [Fatal]
  - Fatigue [Fatal]
  - C-reactive protein increased [Fatal]
  - Escherichia infection [Unknown]
  - Dysbiosis [Unknown]
  - Neutropenia [Unknown]
  - Bacterial sepsis [Fatal]
  - White blood cell count decreased [Unknown]
  - Graft versus host disease in gastrointestinal tract [Fatal]
  - Graft versus host disease in skin [Fatal]
  - Multiple-drug resistance [Unknown]
